FAERS Safety Report 16963941 (Version 2)
Quarter: 2019Q4

REPORT INFORMATION
  Report Type: Spontaneous
  Country: GB (occurrence: GB)
  Receive Date: 20191026
  Receipt Date: 20191107
  Transmission Date: 20200122
  Serious: Yes (Other)
  Sender: FDA-Public Use
  Company Number: GB-ACCORD-159099

PATIENT
  Sex: Male

DRUGS (2)
  1. OXALIPLATIN ACCORD [Suspect]
     Active Substance: OXALIPLATIN
     Indication: COLORECTAL CANCER
  2. IRINOTECAN ACCORD [Suspect]
     Active Substance: IRINOTECAN
     Indication: COLORECTAL CANCER

REACTIONS (3)
  - Paraesthesia [Unknown]
  - Neuropathy peripheral [Unknown]
  - Hypoaesthesia [Unknown]
